FAERS Safety Report 23979100 (Version 6)
Quarter: 2024Q4

REPORT INFORMATION
  Report Type: Report from Study
  Country: US (occurrence: US)
  Receive Date: 20240615
  Receipt Date: 20241008
  Transmission Date: 20250115
  Serious: Yes (Other)
  Sender: JOHNSON AND JOHNSON
  Company Number: US-JNJFOC-20240615237

PATIENT
  Age: 65 Year
  Sex: Male

DRUGS (5)
  1. SELEXIPAG [Suspect]
     Active Substance: SELEXIPAG
     Indication: Pulmonary arterial hypertension
     Route: 048
     Dates: start: 20240501
  2. SELEXIPAG [Suspect]
     Active Substance: SELEXIPAG
     Route: 048
     Dates: start: 202404
  3. SELEXIPAG [Suspect]
     Active Substance: SELEXIPAG
     Route: 048
     Dates: start: 202404, end: 20240611
  4. MACITENTAN [Suspect]
     Active Substance: MACITENTAN
     Indication: Pulmonary arterial hypertension
     Route: 048
     Dates: start: 20240601, end: 202408
  5. OXYGEN [Concomitant]
     Active Substance: OXYGEN
     Dosage: 2L TO 3L

REACTIONS (10)
  - Dependence on oxygen therapy [Not Recovered/Not Resolved]
  - Fluid retention [Recovering/Resolving]
  - Product packaging issue [Unknown]
  - Product lot number issue [Unknown]
  - Dyspnoea [Recovered/Resolved]
  - Weight increased [Recovered/Resolved]
  - Oedema peripheral [Recovered/Resolved]
  - Abdominal discomfort [Recovering/Resolving]
  - Muscular weakness [Recovering/Resolving]
  - Malaise [Recovering/Resolving]

NARRATIVE: CASE EVENT DATE: 20240501
